FAERS Safety Report 5334005-3 (Version None)
Quarter: 2007Q2

REPORT INFORMATION
  Report Type: 
  Country: None (occurrence: None)
  Receive Date: 20070524
  Receipt Date: 20070511
  Transmission Date: 20071010
  Serious: No
  Sender: FDA-Public Use
  Company Number: CA-ELI_LILLY_AND_COMPANY-CA200702003775

PATIENT
  Age: 8 Year
  Sex: Female

DRUGS (4)
  1. STRATTERA [Suspect]
     Indication: ATTENTION DEFICIT/HYPERACTIVITY DISORDER
     Dosage: 10 MG, UNK
     Route: 048
     Dates: start: 20060901
  2. STRATTERA [Interacting]
     Dosage: 25 MG, UNK
  3. ISONIAZID [Interacting]
     Indication: ANTIBIOTIC PROPHYLAXIS
     Dates: start: 20070101, end: 20070101
  4. ISONIAZID [Interacting]
     Dates: start: 20070401, end: 20070101

REACTIONS (2)
  - DRUG INEFFECTIVE [None]
  - DRUG INTERACTION [None]
